FAERS Safety Report 4334476-5 (Version None)
Quarter: 2004Q2

REPORT INFORMATION
  Report Type: 
  Country: None (occurrence: None)
  Receive Date: 20040407
  Receipt Date: 20040401
  Transmission Date: 20050107
  Serious: Yes (Hospitalization)
  Sender: FDA-Public Use
  Company Number: JP-BRISTOL-MYERS SQUIBB COMPANY-12551826

PATIENT
  Age: 21 Year
  Sex: Male

DRUGS (4)
  1. CARBOPLATIN [Suspect]
     Indication: MALIGNANT HAEMANGIOPERICYTOMA
  2. ETOPOSIDE [Suspect]
     Indication: MALIGNANT HAEMANGIOPERICYTOMA
  3. IFOSFAMIDE [Suspect]
     Indication: MALIGNANT HAEMANGIOPERICYTOMA
  4. STEM CELL TRANSPLANTATION [Suspect]
     Indication: MALIGNANT HAEMANGIOPERICYTOMA

REACTIONS (7)
  - ANOREXIA [None]
  - DIARRHOEA [None]
  - DRUG TOXICITY [None]
  - HEPATIC FUNCTION ABNORMAL [None]
  - MUCOSAL INFLAMMATION [None]
  - NAUSEA [None]
  - VOMITING [None]
